FAERS Safety Report 4476758-2 (Version None)
Quarter: 2004Q4

REPORT INFORMATION
  Report Type: 
  Country: None (occurrence: None)
  Receive Date: 20041015
  Receipt Date: 20041001
  Transmission Date: 20050328
  Serious: Yes (Hospitalization)
  Sender: FDA-Public Use
  Company Number: 2004SE05247

PATIENT
  Age: 60 Year
  Sex: Male

DRUGS (9)
  1. ROSUVASTATIN [Suspect]
     Indication: CARDIAC FAILURE
     Dosage: 10 MG DAILY PO
     Route: 048
     Dates: start: 20040511, end: 20040921
  2. BURINEX [Concomitant]
  3. KREDEX [Concomitant]
  4. TRIATEC [Concomitant]
  5. ALBYL-E [Concomitant]
  6. LOSEC [Concomitant]
  7. ALOPAM [Concomitant]
  8. ACETAMINOPHEN [Concomitant]
  9. PARALGIN FORTE [Concomitant]

REACTIONS (7)
  - CARDIOMEGALY [None]
  - DIARRHOEA [None]
  - DIZZINESS [None]
  - HYPOTENSION [None]
  - RENAL FAILURE [None]
  - RHONCHI [None]
  - SEPSIS [None]
